FAERS Safety Report 20711319 (Version 5)
Quarter: 2024Q3

REPORT INFORMATION
  Report Type: Spontaneous
  Country: US (occurrence: US)
  Receive Date: 20220414
  Receipt Date: 20240805
  Transmission Date: 20241017
  Serious: No
  Sender: GLAXOSMITHKLINE
  Company Number: US-GSKCCFUS-Case-01349192_AE-78204

PATIENT
  Age: 61 Year
  Sex: Female

DRUGS (1)
  1. BENLYSTA [Suspect]
     Active Substance: BELIMUMAB
     Indication: Product used for unknown indication
     Dosage: 200 MG/ML
     Route: 058

REACTIONS (4)
  - Exposure via skin contact [Unknown]
  - Accidental exposure to product [Unknown]
  - Product dose omission issue [Unknown]
  - Product complaint [Unknown]

NARRATIVE: CASE EVENT DATE: 20220412
